FAERS Safety Report 20730654 (Version 3)
Quarter: 2024Q2

REPORT INFORMATION
  Report Type: Spontaneous
  Country: US (occurrence: US)
  Receive Date: 20220420
  Receipt Date: 20240415
  Transmission Date: 20240715
  Serious: Yes (Other)
  Sender: FDA-Public Use
  Company Number: US-ASTELLAS-2022US012728

PATIENT
  Age: 75 Year
  Sex: Female

DRUGS (8)
  1. LEXISCAN [Suspect]
     Active Substance: REGADENOSON
     Indication: Cardiac stress test
     Dosage: 0.4 MG, UNKNOWN FREQ. INJECTION: SINGLE-DOSE PRE-FILLED SYRINGE: 0.4 MG/5 ML (0.08 MG/ML)
     Route: 042
     Dates: start: 20200915, end: 20200915
  2. LEXISCAN [Suspect]
     Active Substance: REGADENOSON
     Indication: Cardiac stress test
     Dosage: 0.4 MG, UNKNOWN FREQ. INJECTION: SINGLE-DOSE PRE-FILLED SYRINGE: 0.4 MG/5 ML (0.08 MG/ML)
     Route: 042
     Dates: start: 20200915, end: 20200915
  3. LEXISCAN [Suspect]
     Active Substance: REGADENOSON
     Indication: Cardiac stress test
     Dosage: 0.4 MG, UNKNOWN FREQ. INJECTION: SINGLE-DOSE PRE-FILLED SYRINGE: 0.4 MG/5 ML (0.08 MG/ML)
     Route: 042
     Dates: start: 20200915, end: 20200915
  4. LEXISCAN [Suspect]
     Active Substance: REGADENOSON
     Indication: Cardiac stress test
     Dosage: 0.4 MG, UNKNOWN FREQ. INJECTION: SINGLE-DOSE PRE-FILLED SYRINGE: 0.4 MG/5 ML (0.08 MG/ML)
     Route: 042
     Dates: start: 20200915, end: 20200915
  5. NORVASC [Concomitant]
     Active Substance: AMLODIPINE BESYLATE
     Indication: Product used for unknown indication
     Route: 065
  6. BUSPIRONE [Concomitant]
     Active Substance: BUSPIRONE HYDROCHLORIDE
     Indication: Product used for unknown indication
     Route: 065
  7. LEVOTHYROXINE [Concomitant]
     Active Substance: LEVOTHYROXINE\LEVOTHYROXINE SODIUM
     Indication: Product used for unknown indication
     Route: 065
  8. LIOTHYRONINE [Concomitant]
     Active Substance: LIOTHYRONINE
     Indication: Product used for unknown indication
     Route: 065

REACTIONS (2)
  - Hypotension [Recovered/Resolved]
  - Bradycardia [Recovered/Resolved]

NARRATIVE: CASE EVENT DATE: 20200915
